FAERS Safety Report 7455902-9 (Version None)
Quarter: 2011Q2

REPORT INFORMATION
  Report Type: 
  Country: None (occurrence: None)
  Receive Date: 20110503
  Receipt Date: 20110422
  Transmission Date: 20111010
  Serious: Yes (Hospitalization)
  Sender: FDA-Public Use
  Company Number: B0714941A

PATIENT
  Sex: Female

DRUGS (12)
  1. VITAMINE C [Concomitant]
     Dosage: 1G PER DAY
     Route: 048
     Dates: start: 20110127
  2. OROCAL D3 [Concomitant]
     Indication: OSTEOPOROSIS
     Dosage: 1TAB PER DAY
     Route: 048
  3. TAREG [Concomitant]
     Indication: HYPERTENSION
     Dosage: 80MG PER DAY
     Route: 048
     Dates: end: 20110225
  4. FUROSEMIDE [Concomitant]
     Indication: HYPERTENSION
     Dosage: 20MG PER DAY
     Route: 048
     Dates: end: 20110225
  5. FORLAX [Concomitant]
     Indication: CONSTIPATION
     Route: 048
  6. KARDEGIC [Suspect]
     Indication: THROMBOSIS PROPHYLAXIS
     Dosage: 75MG PER DAY
     Route: 048
     Dates: end: 20110224
  7. ACETAMINOPHEN [Concomitant]
     Indication: PAIN
     Dosage: 1000MG THREE TIMES PER DAY
     Route: 048
  8. FUMAFER [Concomitant]
     Dosage: 66MG THREE TIMES PER DAY
     Route: 048
     Dates: start: 20110127
  9. SEROPLEX [Concomitant]
     Dosage: 10MG PER DAY
     Route: 048
  10. NEXIUM [Concomitant]
     Indication: ANTACID THERAPY
     Dosage: 20MG PER DAY
     Route: 048
  11. RIVOTRIL [Concomitant]
     Dosage: 5DROP PER DAY
     Route: 048
     Dates: start: 20110127
  12. ARIXTRA [Suspect]
     Indication: THROMBOSIS PROPHYLAXIS
     Dosage: 2.5MG PER DAY
     Route: 058
     Dates: start: 20110211, end: 20110224

REACTIONS (5)
  - TRAUMATIC HAEMATOMA [None]
  - DRUG INTERACTION [None]
  - ANAEMIA [None]
  - INFLAMMATION [None]
  - CONTRAINDICATION TO MEDICAL TREATMENT [None]
